FAERS Safety Report 10173650 (Version 1)
Quarter: 2014Q2

REPORT INFORMATION
  Report Type: Spontaneous
  Country: US (occurrence: None)
  Receive Date: 20140416
  Receipt Date: 20140416
  Transmission Date: 20141212
  Serious: No
  Sender: FDA-Public Use
  Company Number: 163-POMAL-13122351

PATIENT
  Age: 81 Year
  Sex: Male
  Weight: 74 kg

DRUGS (10)
  1. POMALYST [Suspect]
     Indication: PLASMA CELL MYELOMA IN REMISSION
     Dosage: 21 IN 21D
     Dates: start: 20130624
  2. NITROSTAT [Concomitant]
  3. LEVOFLOXACIN [Concomitant]
  4. ISOSORBIDE [Concomitant]
  5. ALBUTEROL [Concomitant]
  6. OXYCONTIN (OXYCODONE HYDROCHLORIDE) [Concomitant]
  7. ZOCOR [Concomitant]
  8. DEXAMETHASONE [Concomitant]
  9. IMDUR [Concomitant]
  10. LISINOPRIL [Concomitant]

REACTIONS (2)
  - Tremor [None]
  - Fatigue [None]
